FAERS Safety Report 18483900 (Version 3)
Quarter: 2021Q1

REPORT INFORMATION
  Report Type: Spontaneous
  Country: GB (occurrence: GB)
  Receive Date: 20201109
  Receipt Date: 20210106
  Transmission Date: 20210419
  Serious: Yes (Other)
  Sender: FDA-Public Use
  Company Number: GB-AMGEN-GBRNI2020179770

PATIENT
  Age: 70 Year
  Sex: Female

DRUGS (2)
  1. ETANERCEPT [Suspect]
     Active Substance: ETANERCEPT
     Indication: RHEUMATOID ARTHRITIS
     Dosage: UNK
     Route: 065
  2. IMRALDI [Suspect]
     Active Substance: ADALIMUMAB
     Indication: RHEUMATOID ARTHRITIS
     Dosage: 40 MILLIGRAM, Q2WK
     Route: 058
     Dates: start: 20200827

REACTIONS (7)
  - Spondylitis [Unknown]
  - Therapeutic product effect incomplete [Unknown]
  - Osteoarthritis [Unknown]
  - Erythema [Unknown]
  - Fungal skin infection [Unknown]
  - Injection site pain [Unknown]
  - Rheumatoid arthritis [Unknown]
